FAERS Safety Report 9061634 (Version 2)
Quarter: 2013Q3

REPORT INFORMATION
  Report Type: Spontaneous
  Country: PA (occurrence: PA)
  Receive Date: 20130204
  Receipt Date: 20130806
  Transmission Date: 20140515
  Serious: Yes (Death)
  Sender: FDA-Public Use
  Company Number: PHHY2013PA010142

PATIENT
  Sex: Male

DRUGS (1)
  1. AFINITOR [Suspect]
     Dosage: 10 MG, DAILY
     Route: 048
     Dates: start: 20120607

REACTIONS (1)
  - Death [Fatal]
